FAERS Safety Report 7833187-9 (Version None)
Quarter: 2011Q4

REPORT INFORMATION
  Report Type: 
  Country: None (occurrence: None)
  Receive Date: 20111024
  Receipt Date: 20111012
  Transmission Date: 20120403
  Serious: Yes (Other)
  Sender: FDA-Public Use
  Company Number: GB-US-EMD SERONO, INC.-230041K06GBR

PATIENT
  Sex: Female

DRUGS (4)
  1. REBIF [Suspect]
     Indication: MULTIPLE SCLEROSIS
     Dates: start: 20050622, end: 20060101
  2. ACETAMINOPHEN [Concomitant]
  3. REBIF [Suspect]
     Dates: start: 20060630
  4. METOCLOPRAMIDE [Concomitant]
     Indication: NAUSEA

REACTIONS (5)
  - ABORTION SPONTANEOUS [None]
  - IRRITABILITY [None]
  - MOOD ALTERED [None]
  - MATERNAL EXPOSURE DURING PREGNANCY [None]
  - INJECTION SITE CELLULITIS [None]
